FAERS Safety Report 9238758 (Version 1)
Quarter: 2013Q1

REPORT INFORMATION
  Report Type: Spontaneous
  Country: US (occurrence: None)
  Receive Date: 20121101
  Receipt Date: 20121101
  Transmission Date: 20140127
  Serious: Yes (Hospitalization)
  Sender: FDA-Public Use
  Company Number: 353654

PATIENT
  Age: 66 Year
  Sex: Female
  Weight: 90.7 kg

DRUGS (5)
  1. VAGIFEM [Suspect]
     Indication: VULVOVAGINAL DRYNESS
     Dosage: 25 MG, TWO TIMES WEEKLY, VAGINAL
     Route: 067
  2. VAGIFEM [Suspect]
     Indication: CYSTITIS
     Dosage: 25 MG, TWO TIMES WEEKLY, VAGINAL
     Route: 067
  3. VAGIFEM [Suspect]
     Indication: PROPHYLAXIS
     Dosage: 25 MG, TWO TIMES WEEKLY, VAGINAL
     Route: 067
  4. VERAPAMIL (VERAPAMIL) [Concomitant]
  5. ALLEGRA (FEXOFENADINE HYDROCHLORIDE0 [Concomitant]

REACTIONS (1)
  - Deep vein thrombosis [None]
